FAERS Safety Report 21124440 (Version 4)
Quarter: 2025Q4

REPORT INFORMATION
  Report Type: Spontaneous
  Country: JP (occurrence: JP)
  Receive Date: 20220725
  Receipt Date: 20251208
  Transmission Date: 20260117
  Serious: Yes (Death, Hospitalization, Other)
  Sender: INSMED
  Company Number: JP-INSMED, INC.-2022-02017-JP

PATIENT
  Age: 69 Year
  Sex: Female
  Weight: 34 kg

DRUGS (9)
  1. ARIKAYCE [Suspect]
     Active Substance: AMIKACIN
     Indication: Mycobacterium avium complex infection
     Dosage: 590 MILLIGRAM, QD
     Route: 055
     Dates: start: 20220609, end: 20220714
  2. RIFAMPIN [Concomitant]
     Active Substance: RIFAMPIN
     Indication: Mycobacterium avium complex infection
     Dosage: 150 MILLIGRAM, BID
     Route: 048
     Dates: start: 20111107, end: 20220714
  3. CLARITHROMYCIN [Concomitant]
     Active Substance: CLARITHROMYCIN
     Indication: Mycobacterium avium complex infection
     Dosage: 200 MILLIGRAM, BID
     Route: 048
     Dates: start: 20111107, end: 20220714
  4. EBUTOL [Concomitant]
     Active Substance: ETHAMBUTOL HYDROCHLORIDE
     Indication: Mycobacterium avium complex infection
     Dosage: 125 MILLIGRAM, BID
     Route: 048
     Dates: start: 20111107, end: 20220714
  5. CARBOCYSTEINE [Concomitant]
     Active Substance: CARBOCYSTEINE
     Indication: Bronchiectasis
     Dosage: 500 MILLIGRAM, TID
     Route: 048
     Dates: start: 20111107, end: 20220714
  6. HUSCODE [Concomitant]
     Active Substance: CHLORPHENIRAMINE MALEATE\DIHYDROCODEINE PHOSPHATE\METHYLEPHEDRINE HYDROCHLORIDE, DL-
     Indication: Bronchiectasis
     Dosage: 3 DOSAGE FORM, TID
     Route: 048
     Dates: start: 20170927, end: 20220714
  7. AMBROXOL HYDROCHLORIDE [Concomitant]
     Active Substance: AMBROXOL HYDROCHLORIDE
     Indication: Bronchiectasis
     Dosage: 15 MILLIGRAM, TID
     Route: 048
     Dates: start: 20220527, end: 20220714
  8. COLDRIN [CLOFEDANOL HYDROCHLORIDE] [Concomitant]
     Indication: Bronchiectasis
     Dosage: 12.5 MILLIGRAM, TID
     Route: 048
     Dates: start: 20170830, end: 20220714
  9. OXYGEN [Concomitant]
     Active Substance: OXYGEN
     Indication: Product used for unknown indication
     Dosage: UNK
     Route: 055
     Dates: start: 20220611, end: 20220714

REACTIONS (2)
  - Pneumonia [Fatal]
  - Cardiac failure [Unknown]

NARRATIVE: CASE EVENT DATE: 20220715
